FAERS Safety Report 25429751 (Version 5)
Quarter: 2025Q3

REPORT INFORMATION
  Report Type: Report from Study
  Country: CO (occurrence: CO)
  Receive Date: 20250612
  Receipt Date: 20250812
  Transmission Date: 20251021
  Serious: Yes (Hospitalization)
  Sender: NOVARTIS
  Company Number: CO-002147023-NVSC2025CO093884

PATIENT
  Age: 41 Year
  Sex: Female
  Weight: 83 kg

DRUGS (4)
  1. COSENTYX [Suspect]
     Active Substance: SECUKINUMAB
     Indication: Hidradenitis
     Dosage: 300 MG, QW
     Route: 058
     Dates: start: 20250409, end: 20250512
  2. COSENTYX [Suspect]
     Active Substance: SECUKINUMAB
     Route: 058
     Dates: end: 20250610
  3. COSENTYX [Suspect]
     Active Substance: SECUKINUMAB
     Route: 058
     Dates: start: 20250610
  4. COSENTYX [Suspect]
     Active Substance: SECUKINUMAB
     Route: 065
     Dates: start: 202506

REACTIONS (12)
  - Ear infection [Recovered/Resolved]
  - Malaise [Unknown]
  - Hidradenitis [Unknown]
  - Condition aggravated [Unknown]
  - Seborrhoeic dermatitis [Unknown]
  - Skin irritation [Unknown]
  - Systemic lupus erythematosus [Unknown]
  - Skin candida [Unknown]
  - Infection [Unknown]
  - Acne [Unknown]
  - Inappropriate schedule of product administration [Unknown]
  - Diarrhoea [Recovered/Resolved]

NARRATIVE: CASE EVENT DATE: 20250501
